FAERS Safety Report 8766680 (Version 1)
Quarter: 2012Q4

REPORT INFORMATION
  Report Type: 
  Country: US (occurrence: US)
  Receive Date: 20120904
  Receipt Date: 20120904
  Transmission Date: 20130627
  Serious: Yes (Hospitalization)
  Sender: FDA-Public Use
  Company Number: US-JNJFOC-20120814282

PATIENT
  Sex: Female

DRUGS (3)
  1. TAPENTADOL [Suspect]
     Indication: SPINAL PAIN
     Route: 048
     Dates: start: 20111122, end: 201205
  2. TRAMADOL [Concomitant]
     Route: 065
  3. GABAPENTIN [Concomitant]
     Route: 065

REACTIONS (2)
  - Colitis ulcerative [Recovered/Resolved]
  - Rash [Recovered/Resolved]
